APPROVED DRUG PRODUCT: TRANEXAMIC ACID
Active Ingredient: TRANEXAMIC ACID
Strength: 650MG
Dosage Form/Route: TABLET;ORAL
Application: A205133 | Product #001 | TE Code: AB
Applicant: AUROBINDO PHARMA USA INC
Approved: Sep 21, 2015 | RLD: No | RS: No | Type: RX